FAERS Safety Report 4430911-2 (Version None)
Quarter: 2004Q3

REPORT INFORMATION
  Report Type: 
  Country: None (occurrence: None)
  Receive Date: 20040823
  Receipt Date: 20030508
  Transmission Date: 20050211
  Serious: Yes (Hospitalization)
  Sender: FDA-Public Use
  Company Number: US-ROCHE-337560

PATIENT
  Age: 55 Year
  Sex: Male
  Weight: 92.5 kg

DRUGS (14)
  1. PEG-INTERFERON ALFA 2A (RO 25-8310) [Suspect]
     Route: 058
     Dates: start: 20021126, end: 20030507
  2. PEG-INTERFERON ALFA 2A (RO 25-8310) [Suspect]
     Dosage: INITIAL DOSE.
     Route: 058
     Dates: start: 20030807
  3. RIBAVIRIN [Suspect]
     Route: 048
     Dates: start: 20021126, end: 20030507
  4. RIBAVIRIN [Suspect]
     Dosage: INITIAL DOSE.
     Route: 048
  5. POTASSIUM [Concomitant]
  6. PRINIVIL [Concomitant]
  7. LASIX [Concomitant]
  8. PAXIL [Concomitant]
  9. MILK THISTLE [Concomitant]
  10. PSYLLIUM [Concomitant]
  11. VITAMIN C [Concomitant]
  12. VITAMIN E [Concomitant]
  13. TYLENOL [Concomitant]
  14. LIVER MEDICATION [Concomitant]

REACTIONS (5)
  - POST PROCEDURAL DISCHARGE [None]
  - PROSTATIC ABSCESS [None]
  - PYREXIA [None]
  - SEPSIS [None]
  - STAPHYLOCOCCAL INFECTION [None]
